FAERS Safety Report 6700857-5 (Version None)
Quarter: 2010Q2

REPORT INFORMATION
  Report Type: 
  Country: None (occurrence: None)
  Receive Date: 20100428
  Receipt Date: 20100415
  Transmission Date: 20101027
  Serious: Yes (Hospitalization)
  Sender: FDA-Public Use
  Company Number: FR-ELI_LILLY_AND_COMPANY-FR201003001183

PATIENT
  Sex: Male

DRUGS (5)
  1. ALIMTA [Suspect]
     Indication: LUNG ADENOCARCINOMA
     Dosage: 950 MG, UNKNOWN
     Route: 042
     Dates: start: 20100209
  2. KYTRIL [Concomitant]
     Dosage: UNK, UNKNOWN
     Route: 042
     Dates: start: 20100209, end: 20100209
  3. INIPOMP [Concomitant]
     Dosage: UNK, UNKNOWN
     Route: 042
     Dates: start: 20100209, end: 20100209
  4. METHYLPREDNISOLONE [Concomitant]
     Dosage: UNK, UNKNOWN
     Route: 042
     Dates: start: 20100209, end: 20100209
  5. SOLUPRED [Concomitant]
     Indication: PROPHYLAXIS
     Dosage: UNK, UNKNOWN
     Route: 048
     Dates: start: 20100208, end: 20100210

REACTIONS (2)
  - PRODUCT QUALITY ISSUE [None]
  - URTICARIA [None]
